FAERS Safety Report 15355332 (Version 2)
Quarter: 2018Q4

REPORT INFORMATION
  Report Type: Report from Study
  Country: JP (occurrence: JP)
  Receive Date: 20180906
  Receipt Date: 20181003
  Transmission Date: 20190204
  Serious: Yes (Other)
  Sender: FDA-Public Use
  Company Number: JP-CONCORDIA PHARMACEUTICALS INC.-GSH201809-003180

PATIENT
  Age: 39 Year
  Sex: Female

DRUGS (8)
  1. PLAQUENIL [Suspect]
     Active Substance: HYDROXYCHLOROQUINE SULFATE
     Dosage: AT A DOSE OF 200 MG DAILY AND 400 MG DAILY, ALTERNATELY
     Route: 048
     Dates: start: 20161028
  2. PREDNISOLONE. [Suspect]
     Active Substance: PREDNISOLONE
     Route: 048
     Dates: start: 20160715, end: 20170209
  3. PLAQUENIL [Suspect]
     Active Substance: HYDROXYCHLOROQUINE SULFATE
     Indication: SYSTEMIC LUPUS ERYTHEMATOSUS
     Dosage: AT A DOSE OF 200 MG DAILY AND 400 MG DAILY, ALTERNATELY
     Route: 048
     Dates: start: 20161028
  4. EDIROL [Concomitant]
     Active Substance: ELDECALCITOL
     Indication: INVESTIGATION
  5. PREDNISOLONE. [Suspect]
     Active Substance: PREDNISOLONE
     Route: 048
     Dates: start: 20170210, end: 20171123
  6. PREDNISOLONE. [Suspect]
     Active Substance: PREDNISOLONE
     Indication: SYSTEMIC LUPUS ERYTHEMATOSUS
     Route: 048
  7. PREDNISOLONE. [Suspect]
     Active Substance: PREDNISOLONE
     Indication: SYSTEMIC LUPUS ERYTHEMATOSUS
     Route: 048
     Dates: start: 20171124
  8. EDIROL [Concomitant]
     Active Substance: ELDECALCITOL
     Indication: PROPHYLAXIS

REACTIONS (1)
  - Cataract [Unknown]

NARRATIVE: CASE EVENT DATE: 20180122
